FAERS Safety Report 20506401 (Version 1)
Quarter: 2022Q1

REPORT INFORMATION
  Report Type: Spontaneous
  Country: US (occurrence: US)
  Receive Date: 20220223
  Receipt Date: 20220223
  Transmission Date: 20220423
  Serious: No
  Sender: FDA-Public Use
  Company Number: US-GSKCCFUS-Case-01300095_AE-75752

PATIENT
  Sex: Female

DRUGS (1)
  1. SOTROVIMAB [Suspect]
     Active Substance: SOTROVIMAB
     Indication: COVID-19
     Dosage: 62.5 MG/ML
     Route: 042

REACTIONS (3)
  - Oral pain [Unknown]
  - Aphthous ulcer [Unknown]
  - Swollen tongue [Unknown]
